FAERS Safety Report 4590547-X (Version None)
Quarter: 2005Q1

REPORT INFORMATION
  Report Type: 
  Country: None (occurrence: None)
  Receive Date: 20050224
  Receipt Date: 20050221
  Transmission Date: 20050727
  Serious: Yes (Life-Threatening, Congenital Anomaly)
  Sender: FDA-Public Use
  Company Number: PHBS2005ES02585

PATIENT
  Age: 0 Day
  Sex: Female

DRUGS (2)
  1. VOLTAREN [Suspect]
     Route: 064
  2. TRYPTIZOL [Suspect]

REACTIONS (3)
  - DRUG EXPOSURE DURING PREGNANCY [None]
  - EYELID PTOSIS CONGENITAL [None]
  - HEART DISEASE CONGENITAL [None]
